FAERS Safety Report 14321828 (Version 1)
Quarter: 2017Q4

REPORT INFORMATION
  Report Type: Report from Study
  Country: None (occurrence: US)
  Receive Date: 20171224
  Receipt Date: 20171224
  Transmission Date: 20180321
  Serious: Yes (Hospitalization, Other)
  Sender: FDA-Public Use
  Company Number: US-ABBVIE-17P-163-2202220-00

PATIENT
  Age: 0 Year
  Sex: Female

DRUGS (2)
  1. LUPRON DEPOT [Suspect]
     Active Substance: LEUPROLIDE ACETATE
     Indication: MATERNAL EXPOSURE TIMING UNSPECIFIED
     Route: 063
  2. LUPRON DEPOT [Suspect]
     Active Substance: LEUPROLIDE ACETATE
     Route: 064

REACTIONS (7)
  - Low birth weight baby [Recovered/Resolved]
  - Premature baby [Unknown]
  - Heart rate decreased [Recovered/Resolved]
  - Maternal exposure during pregnancy [Unknown]
  - Exposure during breast feeding [Unknown]
  - Dyspnoea [Recovered/Resolved]
  - Staphylococcal infection [Recovered/Resolved]

NARRATIVE: CASE EVENT DATE: 201111
